FAERS Safety Report 7935034-3 (Version None)
Quarter: 2011Q4

REPORT INFORMATION
  Report Type: 
  Country: None (occurrence: None)
  Receive Date: 20111122
  Receipt Date: 20111111
  Transmission Date: 20120403
  Serious: No
  Sender: FDA-Public Use
  Company Number: US-B.I. PHARMACEUTICALS,INC./RIDGEFIELD-2011-BP-26129BP

PATIENT
  Sex: Female

DRUGS (4)
  1. PRADAXA [Suspect]
     Indication: ATRIAL FIBRILLATION
     Dosage: 300 MG
     Route: 048
     Dates: start: 20110801
  2. ATENOLOL [Concomitant]
     Indication: HEART RATE ABNORMAL
  3. HYZAAR [Concomitant]
     Indication: HYPERTENSION
  4. DIGOXIN [Concomitant]
     Indication: ATRIAL FIBRILLATION

REACTIONS (1)
  - MYALGIA [None]
